FAERS Safety Report 5169274-6 (Version None)
Quarter: 2006Q4

REPORT INFORMATION
  Report Type: 
  Country: None (occurrence: None)
  Receive Date: 20061211
  Receipt Date: 20061201
  Transmission Date: 20070319
  Serious: Yes (Hospitalization)
  Sender: FDA-Public Use
  Company Number: BE-ABBOTT-06P-013-0352187-00

PATIENT
  Sex: Female

DRUGS (8)
  1. HUMIRA [Suspect]
     Indication: RHEUMATOID ARTHRITIS
     Dates: start: 20050802, end: 20051101
  2. HUMIRA [Suspect]
     Dates: start: 20060222
  3. METHOTREXATE [Concomitant]
     Indication: RHEUMATOID ARTHRITIS
  4. METHYLPREDNISOLONE [Concomitant]
     Indication: RHEUMATOID ARTHRITIS
  5. FOLIC ACID [Concomitant]
     Indication: RHEUMATOID ARTHRITIS
  6. CELECOXIB [Concomitant]
     Indication: RHEUMATOID ARTHRITIS
  7. ZUMESTON [Concomitant]
     Indication: DRUG USE FOR UNKNOWN INDICATION
  8. TRADONAL RETARD [Concomitant]
     Indication: DRUG USE FOR UNKNOWN INDICATION

REACTIONS (3)
  - OEDEMA PERIPHERAL [None]
  - ROTATOR CUFF SYNDROME [None]
  - TENDON RUPTURE [None]
